FAERS Safety Report 8491134-3 (Version None)
Quarter: 2012Q3

REPORT INFORMATION
  Report Type: 
  Country: None (occurrence: None)
  Receive Date: 20120706
  Receipt Date: 20120626
  Transmission Date: 20120928
  Serious: Yes (Death, Hospitalization, Other)
  Sender: FDA-Public Use
  Company Number: NL-MPIJNJ-2012-04557

PATIENT

DRUGS (6)
  1. VELCADE [Suspect]
     Indication: MULTIPLE MYELOMA
     Dosage: 2.6 MG, UNK
     Route: 065
     Dates: start: 20120504
  2. VALACICLOVIR [Concomitant]
     Dosage: 500 MG, UNK
  3. CYCLOPHOSPHAMIDE [Concomitant]
     Indication: MULTIPLE MYELOMA
     Dosage: 1000 MG, UNK
     Dates: start: 20120504
  4. FLUCONAZOLE [Concomitant]
     Dosage: 200 MG, UNK
  5. COTRIM [Concomitant]
     Dosage: 480 MG, UNK
  6. DEXAMETHASONE [Concomitant]
     Dosage: 40 MG, UNK
     Dates: start: 20120504

REACTIONS (7)
  - PYREXIA [None]
  - COLITIS [None]
  - OLIGURIA [None]
  - THROMBOCYTOPENIA [None]
  - DIARRHOEA [None]
  - RENAL FAILURE ACUTE [None]
  - LEUKOPENIA [None]
